FAERS Safety Report 18554870 (Version 1)
Quarter: 2020Q4

REPORT INFORMATION
  Report Type: Spontaneous
  Country: BR (occurrence: BR)
  Receive Date: 20201127
  Receipt Date: 20201127
  Transmission Date: 20210114
  Serious: Yes (Hospitalization, Other)
  Sender: FDA-Public Use
  Company Number: BR-JNJFOC-20201131535

PATIENT
  Age: 23 Year
  Sex: Female

DRUGS (3)
  1. ZAVESCA [Suspect]
     Active Substance: MIGLUSTAT
     Indication: NIEMANN-PICK DISEASE
     Route: 065
  2. OXCARBAZEPINE. [Concomitant]
     Active Substance: OXCARBAZEPINE
     Indication: SEIZURE PROPHYLAXIS
  3. CLONAZEPAM. [Concomitant]
     Active Substance: CLONAZEPAM
     Indication: SEIZURE PROPHYLAXIS

REACTIONS (6)
  - Condition aggravated [Unknown]
  - Seizure [Unknown]
  - Speech disorder [Unknown]
  - Dysphagia [Unknown]
  - Memory impairment [Unknown]
  - Walking disability [Unknown]
